FAERS Safety Report 22090817 (Version 1)
Quarter: 2023Q1

REPORT INFORMATION
  Report Type: Spontaneous
  Country: RU (occurrence: RU)
  Receive Date: 20230313
  Receipt Date: 20230313
  Transmission Date: 20230418
  Serious: Yes (Other)
  Sender: FDA-Public Use
  Company Number: RU-BAYER-2023A031250

PATIENT
  Age: 84 Year

DRUGS (1)
  1. XARELTO [Suspect]
     Active Substance: RIVAROXABAN
     Indication: Product used for unknown indication
     Dosage: UNK
     Route: 048
     Dates: start: 20220115

REACTIONS (3)
  - Necrosis [Unknown]
  - Vasculitis [Unknown]
  - Petechiae [Unknown]

NARRATIVE: CASE EVENT DATE: 20220214
